FAERS Safety Report 17576475 (Version 3)
Quarter: 2021Q1

REPORT INFORMATION
  Report Type: Other
  Country: US (occurrence: US)
  Receive Date: 20200324
  Receipt Date: 20210121
  Transmission Date: 20210419
  Serious: Yes (Other)
  Sender: FDA-Public Use
  Company Number: US-ACORDA-ACO_162941_2019

PATIENT
  Sex: Male

DRUGS (4)
  1. INBRIJA [Suspect]
     Active Substance: LEVODOPA
     Indication: PARKINSON^S DISEASE
     Dosage: 84 MILLIGRAM, BID, PRN
     Dates: start: 201910
  2. CARBIDOPA AND LEVODOPA [Concomitant]
     Active Substance: CARBIDOPA\LEVODOPA
     Indication: PRODUCT USED FOR UNKNOWN INDICATION
     Dosage: UNK
     Route: 065
  3. MIDODRINE [Interacting]
     Active Substance: MIDODRINE
     Indication: PRODUCT USED FOR UNKNOWN INDICATION
     Dosage: UNK
     Route: 065
  4. INBRIJA [Interacting]
     Active Substance: LEVODOPA
     Indication: ON AND OFF PHENOMENON

REACTIONS (9)
  - Loss of consciousness [Not Recovered/Not Resolved]
  - Hyperhidrosis [Not Recovered/Not Resolved]
  - Confusional state [Not Recovered/Not Resolved]
  - Hypotension [Recovering/Resolving]
  - Blood pressure orthostatic abnormal [Not Recovered/Not Resolved]
  - Tremor [Not Recovered/Not Resolved]
  - Drug interaction [Not Recovered/Not Resolved]
  - Disturbance in attention [Unknown]
  - Dizziness postural [Not Recovered/Not Resolved]
